FAERS Safety Report 8356983-0 (Version None)
Quarter: 2012Q2

REPORT INFORMATION
  Report Type: 
  Country: None (occurrence: None)
  Receive Date: 20120514
  Receipt Date: 20120509
  Transmission Date: 20120825
  Serious: Yes (Other)
  Sender: FDA-Public Use
  Company Number: US-PFIZER INC-2012113391

PATIENT
  Sex: Male

DRUGS (4)
  1. LIPITOR [Suspect]
     Dosage: 80 MG, DAILY
  2. NITROSTAT [Suspect]
     Dosage: UNK, AS NEEDED
  3. ACCUPRIL [Suspect]
     Dosage: UNK
  4. EFFEXOR XR [Suspect]
     Dosage: 150 MG, DAILY

REACTIONS (1)
  - LEUKAEMIA [None]
